FAERS Safety Report 14801856 (Version 1)
Quarter: 2018Q2

REPORT INFORMATION
  Report Type: Spontaneous
  Country: US (occurrence: US)
  Receive Date: 20180424
  Receipt Date: 20180424
  Transmission Date: 20180711
  Serious: No
  Sender: FDA-Public Use
  Company Number: US-OTSUKA-2018_008789

PATIENT
  Age: 6 Decade
  Sex: Female

DRUGS (1)
  1. REXULTI [Suspect]
     Active Substance: BREXPIPRAZOLE
     Indication: AFFECTIVE DISORDER
     Dosage: 1 MG, QD
     Route: 048

REACTIONS (3)
  - Breast tenderness [Recovered/Resolved]
  - Adverse event [Recovered/Resolved]
  - Product use in unapproved indication [Unknown]
